FAERS Safety Report 26045516 (Version 1)
Quarter: 2025Q4

REPORT INFORMATION
  Report Type: Spontaneous
  Country: JP (occurrence: JP)
  Receive Date: 20251114
  Receipt Date: 20251114
  Transmission Date: 20260117
  Serious: Yes (Other)
  Sender: UCB
  Company Number: JP-UCBJ-CD202514067UCBPHAPROD

PATIENT
  Age: 58 Year

DRUGS (1)
  1. BRIVIACT [Suspect]
     Active Substance: BRIVARACETAM
     Indication: Partial seizures with secondary generalisation
     Dosage: 25 MILLIGRAM, 2X/DAY (BID)

REACTIONS (2)
  - Intentional self-injury [Recovering/Resolving]
  - Screaming [Recovering/Resolving]
